FAERS Safety Report 11301701 (Version 1)
Quarter: 2015Q3

REPORT INFORMATION
  Report Type: Spontaneous
  Country: US (occurrence: US)
  Receive Date: 20150722
  Receipt Date: 20150722
  Transmission Date: 20151125
  Serious: No
  Sender: FDA-Public Use
  Company Number: US-ELI_LILLY_AND_COMPANY-US200903001207

PATIENT
  Age: 58 Year
  Sex: Female

DRUGS (6)
  1. HUMATROPE [Suspect]
     Active Substance: SOMATROPIN
     Dosage: 1 MG, DAILY (1/D)
     Dates: start: 200902
  2. FISH OIL [Concomitant]
     Active Substance: FISH OIL
  3. MVI [Concomitant]
     Active Substance: VITAMINS
  4. ESTRACE [Concomitant]
     Active Substance: ESTRADIOL
  5. HUMATROPE [Suspect]
     Active Substance: SOMATROPIN
     Dosage: 5 MG, DAILY (1/D)
     Dates: start: 200902, end: 200902
  6. CALCIUM [Concomitant]
     Active Substance: CALCIUM

REACTIONS (2)
  - Feeling abnormal [Not Recovered/Not Resolved]
  - Incorrect dose administered [Recovered/Resolved]

NARRATIVE: CASE EVENT DATE: 200902
